FAERS Safety Report 6362380-X (Version None)
Quarter: 2009Q3

REPORT INFORMATION
  Report Type: 
  Country: None (occurrence: None)
  Receive Date: 20090918
  Receipt Date: 20090612
  Transmission Date: 20100115
  Serious: No
  Sender: FDA-Public Use
  Company Number: US-ABBOTT-09P-163-0561148-00

PATIENT
  Sex: Female
  Weight: 59.02 kg

DRUGS (17)
  1. HUMIRA [Suspect]
     Indication: RHEUMATOID ARTHRITIS
     Route: 058
     Dates: start: 20060101, end: 20090206
  2. FLEXERIL [Concomitant]
     Indication: MYALGIA
  3. FLEXERIL [Concomitant]
     Indication: FIBROMYALGIA
  4. ULTRAM [Concomitant]
     Indication: MYALGIA
     Route: 048
  5. ULTRAM [Concomitant]
     Indication: FIBROMYALGIA
  6. MIACALCIN [Concomitant]
     Indication: DRUG USE FOR UNKNOWN INDICATION
     Route: 048
  7. SPIRIVA [Concomitant]
     Indication: CHRONIC OBSTRUCTIVE PULMONARY DISEASE
     Route: 055
  8. ADVAIR HFA [Concomitant]
     Indication: CHRONIC OBSTRUCTIVE PULMONARY DISEASE
     Dosage: FORM: 500/50
     Route: 055
  9. PROTONIX [Concomitant]
     Indication: GASTROOESOPHAGEAL REFLUX DISEASE
     Route: 048
  10. LIBRIUM [Concomitant]
     Indication: ANXIOLYTIC THERAPY
     Route: 048
  11. LIBRIUM [Concomitant]
     Indication: PAIN
  12. SINGULAIR [Concomitant]
     Indication: CHRONIC OBSTRUCTIVE PULMONARY DISEASE
     Route: 048
  13. ZANTAC [Concomitant]
     Indication: GASTROOESOPHAGEAL REFLUX DISEASE
     Dosage: 1.5 TABLETS ONCE DAILY
     Route: 048
  14. TOPAMAX [Concomitant]
     Indication: MIGRAINE
     Route: 048
  15. PROZAC [Concomitant]
     Indication: DEPRESSION
     Route: 048
  16. PROAIR HFA [Concomitant]
     Indication: CHRONIC OBSTRUCTIVE PULMONARY DISEASE
     Dosage: 2 PUFFS QID OR Q 4HRS PRN
     Route: 055
  17. AXERT [Concomitant]
     Indication: MIGRAINE
     Route: 048

REACTIONS (3)
  - FEELING ABNORMAL [None]
  - MYCOBACTERIAL INFECTION [None]
  - PNEUMONIA [None]
